FAERS Safety Report 7125492-9 (Version None)
Quarter: 2010Q4

REPORT INFORMATION
  Report Type: 
  Country: None (occurrence: None)
  Receive Date: 20101129
  Receipt Date: 20101117
  Transmission Date: 20110411
  Serious: Yes (Other)
  Sender: FDA-Public Use
  Company Number: JP-PFIZER INC-2010151172

PATIENT
  Age: 73 Year
  Sex: Female

DRUGS (2)
  1. LYRICA [Suspect]
     Indication: POST HERPETIC NEURALGIA
     Dosage: 50 MG, UNK
     Route: 048
     Dates: start: 20101028
  2. SHAKUYAKUKANZOUTOU [Concomitant]

REACTIONS (1)
  - BLOOD PRESSURE INCREASED [None]
